FAERS Safety Report 14419432 (Version 1)
Quarter: 2018Q1

REPORT INFORMATION
  Report Type: Spontaneous
  Country: US (occurrence: US)
  Receive Date: 20180122
  Receipt Date: 20180122
  Transmission Date: 20180509
  Serious: Yes (Hospitalization, Other)
  Sender: FDA-Public Use
  Company Number: US-IMPAX LABORATORIES, INC-2018-IPXL-00104

PATIENT
  Age: 16 Year
  Sex: Female

DRUGS (1)
  1. NITROFURANTOIN, MACROCRYSTALLINE IR [Suspect]
     Active Substance: NITROFURANTOIN
     Indication: URINARY TRACT INFECTION
     Dosage: UNK
     Route: 065

REACTIONS (10)
  - Maternal exposure during pregnancy [Unknown]
  - Acute respiratory distress syndrome [Recovering/Resolving]
  - Affective disorder [Unknown]
  - Drug ineffective [Unknown]
  - Respiratory failure [Recovered/Resolved]
  - Pre-eclampsia [Recovered/Resolved]
  - Pneumomediastinum [Recovered/Resolved]
  - Escherichia pyelonephritis [Recovered/Resolved]
  - Escherichia sepsis [Recovered/Resolved]
  - Pneumothorax [Recovered/Resolved]
